FAERS Safety Report 18217189 (Version 2)
Quarter: 2020Q3

REPORT INFORMATION
  Report Type: Spontaneous
  Country: US (occurrence: US)
  Receive Date: 20200901
  Receipt Date: 20200921
  Transmission Date: 20201103
  Serious: No
  Sender: FDA-Public Use
  Company Number: US-PFIZER INC-2020334153

PATIENT
  Age: 76 Year
  Sex: Female

DRUGS (2)
  1. METHOTREXATE SODIUM. [Suspect]
     Active Substance: METHOTREXATE SODIUM
     Dosage: 6 DF, WEEKLY
  2. METHOTREXATE SODIUM. [Suspect]
     Active Substance: METHOTREXATE SODIUM
     Dosage: UNK

REACTIONS (7)
  - Arthralgia [Not Recovered/Not Resolved]
  - White blood cell count increased [Unknown]
  - Alanine aminotransferase increased [Unknown]
  - Therapeutic product effect incomplete [Unknown]
  - Pain in extremity [Recovering/Resolving]
  - Neutrophil count increased [Unknown]
  - Pain [Unknown]

NARRATIVE: CASE EVENT DATE: 202008
